FAERS Safety Report 5401360-5 (Version None)
Quarter: 2007Q3

REPORT INFORMATION
  Report Type: 
  Country: None (occurrence: None)
  Receive Date: 20070731
  Receipt Date: 20070728
  Transmission Date: 20080115
  Serious: Yes (Other)
  Sender: FDA-Public Use
  Company Number: A0666824A

PATIENT
  Age: 4 Year
  Sex: Female
  Weight: 20 kg

DRUGS (1)
  1. ZENTEL [Suspect]
     Indication: HELMINTHIC INFECTION
     Route: 048
     Dates: start: 20060101, end: 20070503

REACTIONS (2)
  - HAEMATEMESIS [None]
  - HENOCH-SCHONLEIN PURPURA [None]
